FAERS Safety Report 6958194-X (Version None)
Quarter: 2010Q3

REPORT INFORMATION
  Report Type: 
  Country: None (occurrence: None)
  Receive Date: 20100827
  Receipt Date: 20100827
  Transmission Date: 20110219
  Serious: Yes (Hospitalization)
  Sender: FDA-Public Use
  Company Number: None

PATIENT
  Age: 78 Year
  Sex: Female
  Weight: 79.3795 kg

DRUGS (2)
  1. BONIVA [Suspect]
     Indication: OSTEOPOROSIS
     Dosage: MONTHLY ORAL
     Route: 048
     Dates: start: 20100601
  2. BONIVA [Suspect]
     Indication: OSTEOPOROSIS
     Dosage: MONTHLY ORAL
     Route: 048
     Dates: start: 20100701

REACTIONS (1)
  - BLOOD PRESSURE INCREASED [None]
